FAERS Safety Report 10151586 (Version 1)
Quarter: 2014Q2

REPORT INFORMATION
  Report Type: Spontaneous
  Country: US (occurrence: US)
  Receive Date: 20140505
  Receipt Date: 20140505
  Transmission Date: 20141212
  Serious: Yes (Other)
  Sender: FDA-Public Use
  Company Number: US-JNJCP-30000215762

PATIENT
  Sex: Male
  Weight: 63 kg

DRUGS (6)
  1. NEUTROGENA ULTRA SHEER SUNBLOCK SPF70 [Suspect]
     Indication: PROPHYLAXIS
     Dosage: APPLIED LIBERALLY, DAILY
     Route: 061
  2. INDERAL [Concomitant]
     Indication: CARDIAC DISORDER
     Dosage: ONE TABLET THRICE DAILY SINCE THIRTY YEARS
  3. LIPITOR [Concomitant]
     Indication: BLOOD CHOLESTEROL ABNORMAL
     Dosage: ONE TABLET DAILY SINCE THIRTY YEARS
  4. NEUTROGENA PURE + FREE BABY SUNBLOCK LOTION SPF60+ [Suspect]
     Indication: PROPHYLAXIS
     Dosage: APPLIED LIBERALLY, DAILY
     Route: 061
  5. NEUTROGENA ULTRA SHEER SUNBLOCK SPF70 [Suspect]
     Indication: PROPHYLAXIS
     Dosage: APPLIED LIBERALLY, DAILY
     Route: 061
  6. NEUTROGENA PRODUCTS [Suspect]
     Indication: PROPHYLAXIS
     Route: 061

REACTIONS (4)
  - Skin cancer [Not Recovered/Not Resolved]
  - Product lot number issue [Unknown]
  - Product expiration date issue [Unknown]
  - Expired product administered [Unknown]
